FAERS Safety Report 10365675 (Version 3)
Quarter: 2014Q3

REPORT INFORMATION
  Report Type: Spontaneous
  Country: US (occurrence: None)
  Receive Date: 20140804
  Receipt Date: 20140923
  Transmission Date: 20150326
  Serious: Yes (Other)
  Sender: FDA-Public Use
  Company Number: 2014-US-008322

PATIENT
  Age: 55 Year
  Sex: Female
  Weight: 63.5 kg

DRUGS (4)
  1. XYREM [Suspect]
     Active Substance: SODIUM OXYBATE
     Indication: CATAPLEXY
     Route: 048
     Dates: start: 200608, end: 2006
  2. MORPHINE (MORPHINE SULFATE) [Suspect]
     Active Substance: MORPHINE SULFATE
     Indication: PAIN
  3. XYREM [Suspect]
     Active Substance: SODIUM OXYBATE
     Indication: NARCOLEPSY
     Route: 048
     Dates: start: 200608, end: 2006
  4. XYREM [Suspect]
     Active Substance: SODIUM OXYBATE
     Indication: SOMNOLENCE
     Route: 048
     Dates: start: 200608, end: 2006

REACTIONS (13)
  - Gait disturbance [None]
  - Drug dose omission [None]
  - Procedural pain [None]
  - Stress [None]
  - Joint injury [None]
  - Fall [None]
  - Arthralgia [None]
  - Sleep-related eating disorder [None]
  - Femoroacetabular impingement [None]
  - Depression [None]
  - Arthritis [None]
  - Somnambulism [None]
  - Cartilage injury [None]

NARRATIVE: CASE EVENT DATE: 2014
